FAERS Safety Report 6402053-8 (Version None)
Quarter: 2009Q4

REPORT INFORMATION
  Report Type: 
  Country: None (occurrence: None)
  Receive Date: 20091015
  Receipt Date: 20091005
  Transmission Date: 20100525
  Serious: Yes (Other)
  Sender: FDA-Public Use
  Company Number: BR-ABBOTT-09P-020-0601068-00

PATIENT
  Sex: Female

DRUGS (1)
  1. SIBUTRAMINE [Suspect]
     Indication: DRUG USE FOR UNKNOWN INDICATION
     Route: 048

REACTIONS (11)
  - BLOOD PRESSURE DECREASED [None]
  - DIZZINESS [None]
  - DYSKINESIA [None]
  - HEADACHE [None]
  - LISTLESS [None]
  - NAUSEA [None]
  - PAIN [None]
  - PANIC DISORDER [None]
  - PANIC REACTION [None]
  - PARAESTHESIA [None]
  - TREMOR [None]
